FAERS Safety Report 8170815-5 (Version None)
Quarter: 2012Q1

REPORT INFORMATION
  Report Type: 
  Country: None (occurrence: None)
  Receive Date: 20120104
  Receipt Date: 20111207
  Transmission Date: 20120608
  Serious: No
  Sender: FDA-Public Use
  Company Number: 2011HGS-002929

PATIENT
  Age: 53 Year
  Sex: Male
  Weight: 77.1115 kg

DRUGS (8)
  1. NEXIUM [Concomitant]
  2. TRAMADOL HCL [Concomitant]
  3. HYDROXYCHLOROQUINE(HYDROXYCHLOROQUINE)(HYDROXYCHLOROQUINE) [Concomitant]
  4. ADVAIR(SERETIDE MITE)(FLUTICASONE PROPIONATE, SALMETEROL XINAFOATE) [Concomitant]
  5. ALENDRONATE SODIUM [Concomitant]
  6. MULTIVITAMIN(MULTIVITAMINS)(ERGOCALCIFEROL, ASCORBIC ACID, FOLIC ACID, [Concomitant]
  7. PREDNISONE [Concomitant]
  8. BENLYSTA [Suspect]
     Indication: SYSTEMIC LUPUS ERYTHEMATOSUS
     Dosage: 760 MG, 1 IN 28 D, INTRAVENOUS DRIP
     Route: 041
     Dates: start: 20111122

REACTIONS (6)
  - GAIT DISTURBANCE [None]
  - CONFUSIONAL STATE [None]
  - SYSTEMIC LUPUS ERYTHEMATOSUS [None]
  - OEDEMA PERIPHERAL [None]
  - PAIN IN EXTREMITY [None]
  - ARTHRALGIA [None]
